FAERS Safety Report 13855314 (Version 1)
Quarter: 2017Q3

REPORT INFORMATION
  Report Type: Spontaneous
  Country: US (occurrence: US)
  Receive Date: 20170810
  Receipt Date: 20170810
  Transmission Date: 20171127
  Serious: No
  Sender: FDA-Public Use
  Company Number: US-VIFOR (INTERNATIONAL) INC.-VIT-2017-04669

PATIENT
  Age: 65 Year
  Sex: Female

DRUGS (24)
  1. MONTELUKAST [Concomitant]
     Active Substance: MONTELUKAST SODIUM
  2. VELTASSA [Suspect]
     Active Substance: PATIROMER
     Indication: HYPERKALAEMIA
     Route: 048
     Dates: start: 20170124, end: 20170420
  3. VOLTAREN [Concomitant]
     Active Substance: DICLOFENAC SODIUM
  4. AMOXICILLIN. [Concomitant]
     Active Substance: AMOXICILLIN
  5. ALENDRONATE [Concomitant]
     Active Substance: ALENDRONATE SODIUM
  6. NEXIUM [Concomitant]
     Active Substance: ESOMEPRAZOLE MAGNESIUM
  7. CITALOPRAM [Concomitant]
     Active Substance: CITALOPRAM HYDROBROMIDE
  8. CARBO/LEVO [Concomitant]
  9. METOPROLOL. [Concomitant]
     Active Substance: METOPROLOL
  10. ATORVASTATIN [Concomitant]
     Active Substance: ATORVASTATIN
  11. PROCHLORPERAZINE. [Concomitant]
     Active Substance: PROCHLORPERAZINE
  12. MACROGOL [Concomitant]
     Active Substance: POLYETHYLENE GLYCOLS
  13. GABAPENTIN. [Concomitant]
     Active Substance: GABAPENTIN
  14. NOVOLOG [Concomitant]
     Active Substance: INSULIN ASPART
  15. FUROSEMIDE. [Concomitant]
     Active Substance: FUROSEMIDE
  16. RALOXIFENE. [Concomitant]
     Active Substance: RALOXIFENE
  17. TRAMADOL. [Concomitant]
     Active Substance: TRAMADOL
  18. SENNA ALEXANDRINA [Concomitant]
     Active Substance: SENNA LEAF
  19. TRIAMCINOLONE ACETONIDE. [Concomitant]
     Active Substance: TRIAMCINOLONE ACETONIDE
  20. LYRICA [Concomitant]
     Active Substance: PREGABALIN
  21. CEFUROXIME. [Concomitant]
     Active Substance: CEFUROXIME
  22. VIGAMOX [Concomitant]
     Active Substance: MOXIFLOXACIN HYDROCHLORIDE
  23. CROMOLYN NA [Concomitant]
  24. DOXYCYCLINE. [Concomitant]
     Active Substance: DOXYCYCLINE

REACTIONS (2)
  - Treatment noncompliance [Unknown]
  - Dizziness [Unknown]

NARRATIVE: CASE EVENT DATE: 201704
